FAERS Safety Report 26153762 (Version 1)
Quarter: 2025Q4

REPORT INFORMATION
  Report Type: Spontaneous
  Country: US (occurrence: US)
  Receive Date: 20251214
  Receipt Date: 20251214
  Transmission Date: 20260118
  Serious: Yes (Life-Threatening, Disabling)
  Sender: IPSEN BIOPHARMACEUTICALS, INC.
  Company Number: US-MLMSERVICE-20251203-PI731888-00394-1

PATIENT
  Age: 78 Year
  Sex: Female

DRUGS (1)
  1. BOTULINUM TOXIN NOS [Suspect]
     Active Substance: BOTULINUM TOXIN NOS
     Indication: Blepharospasm
     Dosage: INJECTION IN THE RIGHT UPPER AND LOWER LIDS

REACTIONS (6)
  - Injection site pain [Recovering/Resolving]
  - Cystoid macular oedema [Recovering/Resolving]
  - Bacterial endophthalmitis [Recovering/Resolving]
  - Open globe injury [Recovering/Resolving]
  - Staphylococcal infection [Recovering/Resolving]
  - Product administration error [Unknown]
